FAERS Safety Report 4417670-4 (Version None)
Quarter: 2004Q2

REPORT INFORMATION
  Report Type: 
  Country: None (occurrence: None)
  Receive Date: 20040629
  Receipt Date: 20040120
  Transmission Date: 20050107
  Serious: Yes (Other)
  Sender: FDA-Public Use
  Company Number: USA040157073

PATIENT
  Age: 62 Year
  Sex: Female
  Weight: 54 kg

DRUGS (5)
  1. HUMALOG [Suspect]
     Dosage: 3 U/3 DAY
     Dates: start: 19990101
  2. HUMULIN R [Suspect]
  3. SYNTHROID [Concomitant]
  4. COZAAR [Concomitant]
  5. LANTUS [Concomitant]

REACTIONS (5)
  - BLOOD GLUCOSE INCREASED [None]
  - DEPRESSION [None]
  - DIABETIC RETINOPATHY [None]
  - HYPOTHYROIDISM [None]
  - PROTEIN URINE PRESENT [None]
